FAERS Safety Report 16754006 (Version 1)
Quarter: 2019Q3

REPORT INFORMATION
  Report Type: Spontaneous
  Country: GB (occurrence: GB)
  Receive Date: 20190829
  Receipt Date: 20190829
  Transmission Date: 20191005
  Serious: Yes (Life-Threatening, Hospitalization)
  Sender: FDA-Public Use
  Company Number: GB-FRESENIUS KABI-FK201909462

PATIENT
  Age: 34 Year
  Sex: Male

DRUGS (1)
  1. LIDOCAINE (MANUFACTURER UNKNOWN) [Suspect]
     Active Substance: LIDOCAINE
     Indication: ORTHODONTIC PROCEDURE
     Dosage: UNKNOWN
     Route: 065

REACTIONS (2)
  - Obstructive airways disorder [Recovered/Resolved]
  - Respiratory tract oedema [Recovered/Resolved]
